FAERS Safety Report 6653330-7 (Version None)
Quarter: 2010Q1

REPORT INFORMATION
  Report Type: 
  Country: None (occurrence: None)
  Receive Date: 20100326
  Receipt Date: 20100317
  Transmission Date: 20100710
  Serious: Yes (Death, Other)
  Sender: FDA-Public Use
  Company Number: US-ROCHE-687281

PATIENT
  Age: 57 Year
  Sex: Male
  Weight: 85 kg

DRUGS (4)
  1. BLINDED BEVACIZUMAB [Suspect]
     Indication: GLIOBLASTOMA MULTIFORME
     Dosage: FREQUENCY: DAY1 OF WEEK 4 AND 6
     Route: 042
     Dates: start: 20090928, end: 20091027
  2. BLINDED BEVACIZUMAB [Suspect]
     Route: 042
     Dates: start: 20091110, end: 20091208
  3. BLINDED BEVACIZUMAB [Suspect]
     Route: 042
     Dates: end: 20100120
  4. TEMOZOLOMIDE [Suspect]
     Indication: GLIOBLASTOMA MULTIFORME
     Dosage: DOSE: 150-200 MG/M2 ON DAYS 1 TO 5.
     Route: 048
     Dates: start: 20090928, end: 20100110

REACTIONS (3)
  - CONFUSIONAL STATE [None]
  - DEATH [None]
  - GENERAL PHYSICAL HEALTH DETERIORATION [None]
